FAERS Safety Report 8981493 (Version 2)
Quarter: 2013Q2

REPORT INFORMATION
  Report Type: Spontaneous
  Country: FI (occurrence: FI)
  Receive Date: 20121221
  Receipt Date: 20130401
  Transmission Date: 20140414
  Serious: Yes (Other)
  Sender: FDA-Public Use
  Company Number: FI-JNJFOC-20121205461

PATIENT
  Age: 65 Year
  Sex: Female

DRUGS (3)
  1. DOXORUBICIN HYDROCHLORIDE (CAELYX) [Suspect]
     Indication: OVARIAN CANCER
     Route: 042
     Dates: end: 20121211
  2. EMCONCOR [Concomitant]
     Route: 065
  3. LIPCUT [Concomitant]
     Route: 065

REACTIONS (2)
  - Erythema [Recovered/Resolved]
  - Dyspnoea [Recovered/Resolved]
